FAERS Safety Report 15436786 (Version 1)
Quarter: 2018Q3

REPORT INFORMATION
  Report Type: Spontaneous
  Country: US (occurrence: US)
  Receive Date: 20180927
  Receipt Date: 20180927
  Transmission Date: 20181010
  Serious: Yes (Hospitalization)
  Sender: FDA-Public Use
  Company Number: US-ACTELION-A-US2018-179309

PATIENT
  Age: 5 Year
  Sex: Male

DRUGS (16)
  1. TRACLEER [Suspect]
     Active Substance: BOSENTAN
     Dosage: 62.5 MG, UNK
     Route: 048
     Dates: start: 20180117
  2. REVATIO [Concomitant]
     Active Substance: SILDENAFIL CITRATE
     Dosage: 10 MG/ML, UNK
     Dates: start: 20180117
  3. CETIRIZINE [Concomitant]
     Active Substance: CETIRIZINE HYDROCHLORIDE
     Dosage: 1 MG/ML, UNK
     Dates: start: 20180915
  4. FUROSEMIDE. [Concomitant]
     Active Substance: FUROSEMIDE
     Dosage: 10 MG/ML, UNK
     Dates: start: 20180917
  5. FUROSEMIDE. [Concomitant]
     Active Substance: FUROSEMIDE
     Dosage: 10 MG/ML, UNK
     Dates: start: 20171030
  6. POTASSIUM CHLORIDE. [Concomitant]
     Active Substance: POTASSIUM CHLORIDE
     Dosage: 10 %, UNK
     Dates: start: 20180709
  7. NYSTOP [Concomitant]
     Active Substance: NYSTATIN
     Dosage: UNK
     Dates: start: 20171003
  8. PREDNISOLONE. [Concomitant]
     Active Substance: PREDNISOLONE
     Dosage: 15 MG/5ML
     Dates: start: 20180815
  9. ADVAIR HFA [Concomitant]
     Active Substance: FLUTICASONE PROPIONATE\SALMETEROL XINAFOATE
     Dosage: UNK
     Dates: start: 20180731
  10. DIURIL [Concomitant]
     Active Substance: CHLOROTHIAZIDE
     Dosage: 250/5
     Dates: start: 20180709
  11. LEVALBUTEROL. [Concomitant]
     Active Substance: LEVALBUTEROL
     Dosage: 0.63 MG, UNK
     Dates: start: 20180625
  12. NYSTATIN. [Concomitant]
     Active Substance: NYSTATIN
     Dosage: UNK
     Dates: start: 20171013
  13. CETIRIZINE [Concomitant]
     Active Substance: CETIRIZINE HYDROCHLORIDE
     Dosage: 1 MG/ML, UNK
     Dates: start: 20180318
  14. CETIRIZINE [Concomitant]
     Active Substance: CETIRIZINE HYDROCHLORIDE
     Dosage: 1 MG/ML, UNK
     Dates: start: 20180917
  15. TRACLEER [Suspect]
     Active Substance: BOSENTAN
     Indication: PULMONARY ARTERIAL HYPERTENSION
     Dosage: 16 MG, 3 ? 5 MLS
     Route: 048
     Dates: start: 20180123
  16. FUROSEMIDE. [Concomitant]
     Active Substance: FUROSEMIDE
     Dosage: 10 MG/ML, UNK
     Dates: start: 20180918

REACTIONS (1)
  - Catheterisation cardiac [Not Recovered/Not Resolved]

NARRATIVE: CASE EVENT DATE: 20180912
